FAERS Safety Report 8377442-5 (Version None)
Quarter: 2012Q2

REPORT INFORMATION
  Report Type: 
  Country: None (occurrence: None)
  Receive Date: 20120522
  Receipt Date: 20120229
  Transmission Date: 20120825
  Serious: No
  Sender: FDA-Public Use
  Company Number: US-ASTRAZENECA-2011SE55921

PATIENT
  Age: 40 Year
  Sex: Male

DRUGS (3)
  1. PREVACID [Concomitant]
  2. PRILOSEC [Suspect]
     Route: 048
  3. NEXIUM [Suspect]
     Indication: GASTROOESOPHAGEAL REFLUX DISEASE
     Route: 048

REACTIONS (4)
  - DYSPEPSIA [None]
  - GASTROOESOPHAGEAL REFLUX DISEASE [None]
  - DRUG DOSE OMISSION [None]
  - DRUG INEFFECTIVE [None]
